FAERS Safety Report 7879338-1 (Version None)
Quarter: 2011Q4

REPORT INFORMATION
  Report Type: 
  Country: None (occurrence: None)
  Receive Date: 20111101
  Receipt Date: 20111018
  Transmission Date: 20120403
  Serious: Yes (Hospitalization)
  Sender: FDA-Public Use
  Company Number: TW-ELI_LILLY_AND_COMPANY-TW201108004675

PATIENT
  Age: 86 Year
  Sex: Female

DRUGS (1)
  1. FORTEO [Suspect]
     Indication: SPINAL FRACTURE
     Dosage: UNK

REACTIONS (3)
  - OFF LABEL USE [None]
  - PYREXIA [None]
  - DIARRHOEA [None]
